FAERS Safety Report 11554576 (Version 1)
Quarter: 2015Q3

REPORT INFORMATION
  Report Type: Spontaneous
  Country: EE (occurrence: EE)
  Receive Date: 20150925
  Receipt Date: 20150925
  Transmission Date: 20151125
  Serious: Yes (Hospitalization, Other)
  Sender: FDA-Public Use
  Company Number: EE-AMGEN-ESTSP2015098584

PATIENT
  Sex: Male

DRUGS (1)
  1. ENBREL [Suspect]
     Active Substance: ETANERCEPT
     Indication: JUVENILE IDIOPATHIC ARTHRITIS
     Dosage: 50 MG, WEEKLY
     Route: 064
     Dates: start: 20131011, end: 20150701

REACTIONS (3)
  - Maternal exposure during pregnancy [Recovered/Resolved]
  - Meconium aspiration syndrome [Recovered/Resolved]
  - Apgar score low [Recovered/Resolved]

NARRATIVE: CASE EVENT DATE: 2015
